FAERS Safety Report 7711466-3 (Version None)
Quarter: 2011Q3

REPORT INFORMATION
  Report Type: 
  Country: None (occurrence: None)
  Receive Date: 20110823
  Receipt Date: 20110809
  Transmission Date: 20111222
  Serious: Yes (Death)
  Sender: FDA-Public Use
  Company Number: 2011146408

PATIENT
  Age: 86 Year

DRUGS (1)
  1. FRAGMIN [Suspect]
     Indication: THROMBOSIS PROPHYLAXIS
     Dosage: 5000 IU, 1X/DAY, SUBCUTANEOUS
     Route: 058
     Dates: start: 20110420

REACTIONS (5)
  - PULMONARY EMBOLISM [None]
  - TREATMENT FAILURE [None]
  - PHLEBITIS [None]
  - SUDDEN DEATH [None]
  - POST PROCEDURAL COMPLICATION [None]
